FAERS Safety Report 6666398-9 (Version None)
Quarter: 2010Q1

REPORT INFORMATION
  Report Type: 
  Country: None (occurrence: None)
  Receive Date: 20100331
  Receipt Date: 20100325
  Transmission Date: 20100710
  Serious: Yes (Other)
  Sender: FDA-Public Use
  Company Number: A0840680A

PATIENT
  Age: 50 Year
  Sex: Female

DRUGS (1)
  1. SENSODYNE-F [Suspect]
     Indication: SENSITIVITY OF TEETH
     Dosage: DENTAL
     Route: 004

REACTIONS (6)
  - BLOOD GLUCOSE ABNORMAL [None]
  - GINGIVAL DISORDER [None]
  - GINGIVAL PAIN [None]
  - GINGIVAL RECESSION [None]
  - PRODUCT ODOUR ABNORMAL [None]
  - VOMITING [None]
